FAERS Safety Report 8183489-4 (Version None)
Quarter: 2012Q1

REPORT INFORMATION
  Report Type: 
  Country: None (occurrence: None)
  Receive Date: 20120130
  Receipt Date: 20110802
  Transmission Date: 20120608
  Serious: Yes (Hospitalization)
  Sender: FDA-Public Use
  Company Number: 038192

PATIENT
  Age: 39 Year
  Sex: Female

DRUGS (5)
  1. ZONISAMIDE [Concomitant]
  2. PHENYTOIN [Concomitant]
  3. KEPPRA [Suspect]
     Dosage: INITIAL DOSE: 250MG, 1000MG EVERY OTHER DAY ORAL
     Route: 048
     Dates: start: 20090731, end: 20091130
  4. TOPIRAMATE [Concomitant]
  5. LAMICTAL [Concomitant]

REACTIONS (2)
  - EPILEPSY [None]
  - ADVERSE DRUG REACTION [None]
